FAERS Safety Report 9717153 (Version 2)
Quarter: 2013Q4

REPORT INFORMATION
  Report Type: Spontaneous
  Country: US (occurrence: None)
  Receive Date: 20131125
  Receipt Date: 20131226
  Transmission Date: 20140711
  Serious: Yes (Other)
  Sender: FDA-Public Use
  Company Number: 2013-US-003396

PATIENT
  Age: 42 Year
  Sex: Female
  Weight: 78.9 kg

DRUGS (1)
  1. XYREM [Suspect]
     Indication: NARCOLEPSY
     Route: 048
     Dates: start: 200510, end: 2005

REACTIONS (7)
  - Cataract [None]
  - Cataract operation [None]
  - Sleep apnoea syndrome [None]
  - Myalgia [None]
  - Dry mouth [None]
  - Bruxism [None]
  - Condition aggravated [None]
